FAERS Safety Report 11060925 (Version 1)
Quarter: 2015Q2

REPORT INFORMATION
  Report Type: Spontaneous
  Country: US (occurrence: US)
  Receive Date: 20150424
  Receipt Date: 20150424
  Transmission Date: 20150821
  Serious: No
  Sender: FDA-Public Use
  Company Number: US-NOVEN PHARMACEUTICALS, INC.-US2015000049

PATIENT
  Age: 46 Year
  Sex: Female

DRUGS (7)
  1. BRISDELLE [Suspect]
     Active Substance: PAROXETINE MESYLATE
     Indication: HORMONE LEVEL ABNORMAL
  2. BRISDELLE [Suspect]
     Active Substance: PAROXETINE MESYLATE
     Indication: DEPRESSION
     Dosage: 7.5 MG, SINGLE
     Route: 048
     Dates: start: 20150309, end: 20150309
  3. BRISDELLE [Suspect]
     Active Substance: PAROXETINE MESYLATE
     Indication: ASTHENIA
  4. OMEPRAZOLE. [Concomitant]
     Active Substance: OMEPRAZOLE
  5. METHOTREXATE SODIUM. [Concomitant]
     Active Substance: METHOTREXATE SODIUM
  6. FOLIC ACID. [Concomitant]
     Active Substance: FOLIC ACID
  7. BRISDELLE [Suspect]
     Active Substance: PAROXETINE MESYLATE
     Indication: FATIGUE

REACTIONS (4)
  - Drug prescribing error [Unknown]
  - Diarrhoea [Recovered/Resolved]
  - Therapy cessation [Unknown]
  - Abdominal pain upper [Recovered/Resolved]

NARRATIVE: CASE EVENT DATE: 20150309
